FAERS Safety Report 11106978 (Version 2)
Quarter: 2015Q2

REPORT INFORMATION
  Report Type: Spontaneous
  Country: US (occurrence: US)
  Receive Date: 20150512
  Receipt Date: 20150610
  Transmission Date: 20150821
  Serious: No
  Sender: FDA-Public Use
  Company Number: US-PFIZER INC-2015156803

PATIENT
  Age: 44 Year
  Sex: Male

DRUGS (2)
  1. VALIUM [Concomitant]
     Active Substance: DIAZEPAM
     Dosage: UNK
  2. BOSULIF [Suspect]
     Active Substance: BOSUTINIB MONOHYDRATE
     Indication: LEUKAEMIA
     Dosage: 400 MG, DAILY (100MG-4 TABLETS)
     Route: 048
     Dates: start: 20140130, end: 201503

REACTIONS (2)
  - Disease recurrence [Unknown]
  - Leukaemia [Unknown]

NARRATIVE: CASE EVENT DATE: 20150324
